FAERS Safety Report 9287929 (Version 2)
Quarter: 2013Q3

REPORT INFORMATION
  Report Type: Spontaneous
  Country: US (occurrence: US)
  Receive Date: 20130514
  Receipt Date: 20130830
  Transmission Date: 20140515
  Serious: Yes (Hospitalization, Other)
  Sender: FDA-Public Use
  Company Number: US-BAYER-2013-059282

PATIENT
  Age: 29 Year
  Sex: Female
  Weight: 68.03 kg

DRUGS (3)
  1. YAZ [Suspect]
     Dosage: UNK
     Dates: start: 2002, end: 2004
  2. YASMIN [Suspect]
     Dosage: UNK
     Dates: start: 2002, end: 2004
  3. OCELLA [Suspect]
     Dosage: UNK
     Dates: start: 2002, end: 2004

REACTIONS (9)
  - Deep vein thrombosis [None]
  - Thrombosis [None]
  - Injury [None]
  - Pain [None]
  - Emotional distress [None]
  - General physical health deterioration [None]
  - Anxiety [None]
  - Abdominal pain [None]
  - Pain [None]
